FAERS Safety Report 8066045-8 (Version None)
Quarter: 2012Q1

REPORT INFORMATION
  Report Type: 
  Country: None (occurrence: None)
  Receive Date: 20120124
  Receipt Date: 20120109
  Transmission Date: 20120608
  Serious: Yes (Hospitalization, Other)
  Sender: FDA-Public Use
  Company Number: DE-CELGENEUS-062-50794-11100310

PATIENT
  Age: 58 Year
  Sex: Male
  Weight: 65 kg

DRUGS (3)
  1. VIDAZA [Suspect]
     Indication: ACUTE MYELOID LEUKAEMIA
     Dosage: 100 MILLIGRAM
     Route: 058
     Dates: start: 20100805, end: 20100811
  2. VIDAZA [Suspect]
     Dosage: 140 MILLIGRAM
     Route: 058
     Dates: start: 20100902, end: 20100907
  3. ANTIBIOTICS [Concomitant]
     Indication: OSTEOMYELITIS
     Route: 065

REACTIONS (5)
  - GENERAL PHYSICAL HEALTH DETERIORATION [None]
  - ACUTE MYELOID LEUKAEMIA [None]
  - OSTEOMYELITIS [None]
  - STENOTROPHOMONAS INFECTION [None]
  - NEUTROPHIL COUNT DECREASED [None]
